FAERS Safety Report 13599478 (Version 2)
Quarter: 2017Q3

REPORT INFORMATION
  Report Type: Spontaneous
  Country: JP (occurrence: JP)
  Receive Date: 20170531
  Receipt Date: 20170803
  Transmission Date: 20171127
  Serious: Yes (Hospitalization, Other)
  Sender: FDA-Public Use
  Company Number: JP-IMPAX LABORATORIES, INC-2017-IPXL-01512

PATIENT
  Age: 10 Year
  Sex: Female
  Weight: 16 kg

DRUGS (9)
  1. BACLOFEN. [Suspect]
     Active Substance: BACLOFEN
     Indication: QUADRIPARESIS
     Dosage: 25 ?G, UNK
     Route: 037
  2. CLOBAZAM [Concomitant]
     Active Substance: CLOBAZAM
     Indication: MUSCLE SPASTICITY
     Dosage: UNK
     Route: 065
  3. BACLOFEN. [Suspect]
     Active Substance: BACLOFEN
     Dosage: 50 ?G, UNK
     Route: 037
  4. DIAZEPAM. [Concomitant]
     Active Substance: DIAZEPAM
     Indication: MUSCLE SPASTICITY
     Dosage: UNK
     Route: 065
  5. DIVALPROEX SODIUM ER [Suspect]
     Active Substance: DIVALPROEX SODIUM
     Indication: MUSCLE SPASTICITY
     Dosage: UNK
     Route: 065
  6. BOTULINUM TOXIN [Concomitant]
     Active Substance: BOTULINUM TOXIN NOS
     Indication: MUSCLE SPASTICITY
     Dosage: UNK
     Route: 065
  7. BACLOFEN. [Suspect]
     Active Substance: BACLOFEN
     Dosage: 90 ?G, UNK
     Route: 037
  8. PHENOBARBITAL. [Concomitant]
     Active Substance: PHENOBARBITAL
     Indication: MUSCLE SPASTICITY
     Dosage: UNK
     Route: 065
  9. TIZANIDINE. [Concomitant]
     Active Substance: TIZANIDINE
     Indication: MUSCLE SPASTICITY
     Dosage: UNK
     Route: 065

REACTIONS (9)
  - Withdrawal syndrome [Recovered/Resolved]
  - Joint dislocation [Unknown]
  - Cerebrospinal fluid leakage [Recovered/Resolved]
  - Drug ineffective [Unknown]
  - Pallor [Recovered/Resolved]
  - Decubitus ulcer [Unknown]
  - Administration site infection [Unknown]
  - Affective disorder [Recovered/Resolved]
  - Pneumonia [Recovered/Resolved]
